FAERS Safety Report 8417624-7 (Version None)
Quarter: 2012Q2

REPORT INFORMATION
  Report Type: 
  Country: None (occurrence: None)
  Receive Date: 20120606
  Receipt Date: 20120531
  Transmission Date: 20120825
  Serious: Yes (Hospitalization)
  Sender: FDA-Public Use
  Company Number: MT-ROCHE-1040827

PATIENT
  Sex: Male

DRUGS (2)
  1. XOLAIR [Suspect]
     Dosage: DOSE DECREASED
     Route: 058
  2. XOLAIR [Suspect]
     Indication: ASTHMA
     Route: 058
     Dates: start: 20120131

REACTIONS (2)
  - MYALGIA [None]
  - ASTHMA [None]
